FAERS Safety Report 21547957 (Version 1)
Quarter: 2022Q4

REPORT INFORMATION
  Report Type: Spontaneous
  Country: PT (occurrence: PT)
  Receive Date: 20221103
  Receipt Date: 20221103
  Transmission Date: 20230113
  Serious: Yes (Hospitalization, Other)
  Sender: FDA-Public Use
  Company Number: PT-TEVA-2022-PT-2820441

PATIENT
  Age: 77 Year
  Sex: Male

DRUGS (2)
  1. PACLITAXEL [Suspect]
     Active Substance: PACLITAXEL
     Indication: Lung adenocarcinoma
     Route: 065
  2. Carboplatln [Concomitant]
     Indication: Lung adenocarcinoma
     Route: 065

REACTIONS (2)
  - Hypersensitivity pneumonitis [Recovering/Resolving]
  - Pulmonary toxicity [Recovering/Resolving]
